FAERS Safety Report 11105605 (Version 1)
Quarter: 2015Q2

REPORT INFORMATION
  Report Type: Spontaneous
  Country: US (occurrence: None)
  Receive Date: 20150508
  Receipt Date: 20150508
  Transmission Date: 20150821
  Serious: Yes (Disabling)
  Sender: FDA-Public Use
  Company Number: None

PATIENT
  Age: 11 Year
  Sex: Male
  Weight: 39.92 kg

DRUGS (4)
  1. QNASL [Suspect]
     Active Substance: BECLOMETHASONE DIPROPIONATE
     Indication: MULTIPLE ALLERGIES
     Dosage: 2 SPRAYS PER NOSTRIL
     Route: 045
     Dates: start: 20121015, end: 20150105
  2. SIMVASTATIN. [Concomitant]
     Active Substance: SIMVASTATIN
  3. CHILDREN^S MULTI-VITAMIN [Concomitant]
  4. CARBNIOXAMIN [Concomitant]

REACTIONS (1)
  - Growth retardation [None]

NARRATIVE: CASE EVENT DATE: 20121015
